FAERS Safety Report 15708395 (Version 1)
Quarter: 2018Q4

REPORT INFORMATION
  Report Type: Spontaneous
  Country: US (occurrence: US)
  Receive Date: 20181128
  Receipt Date: 20181128
  Transmission Date: 20190205
  Serious: Yes (Death)
  Sender: FDA-Public Use
  Company Number: None

PATIENT
  Age: 68 Year
  Sex: Female

DRUGS (10)
  1. IBRANCE [Suspect]
     Active Substance: PALBOCICLIB
     Indication: BONE CANCER
     Dosage: ?          OTHER FREQUENCY:DAILY X 21 DAYS ;?
     Route: 048
     Dates: start: 201711, end: 20181112
  2. EZETIMIBE. [Concomitant]
     Active Substance: EZETIMIBE
  3. PILOGLITAZONE [Concomitant]
  4. METFORMIN [Concomitant]
     Active Substance: METFORMIN HYDROCHLORIDE
  5. SIMVASTATIN. [Concomitant]
     Active Substance: SIMVASTATIN
  6. MONTELUKAST [Concomitant]
     Active Substance: MONTELUKAST SODIUM
  7. DESONIDE. [Concomitant]
     Active Substance: DESONIDE
  8. LETROZOLE TABLET [Suspect]
     Active Substance: LETROZOLE
     Indication: BONE CANCER
     Dosage: ?          OTHER FREQUENCY:DAILY X 28 DAYS ;?
     Route: 048
     Dates: start: 201711, end: 20181112
  9. GABAPENTIN. [Concomitant]
     Active Substance: GABAPENTIN
  10. POTASSIUM CL TAB [Concomitant]

REACTIONS (1)
  - Death [None]

NARRATIVE: CASE EVENT DATE: 20181112
